FAERS Safety Report 9757366 (Version 1)
Quarter: 2013Q4

REPORT INFORMATION
  Report Type: Spontaneous
  Country: CH (occurrence: CH)
  Receive Date: 20131214
  Receipt Date: 20131214
  Transmission Date: 20140711
  Serious: Yes (Death, Hospitalization, Other)
  Sender: FDA-Public Use
  Company Number: CH-009507513-1312CHE005879

PATIENT
  Age: 76 Year
  Sex: Male

DRUGS (5)
  1. REMERON [Suspect]
     Dosage: 15 MG, QD
     Route: 048
  2. MARCOUMAR [Suspect]
     Indication: ATRIAL FIBRILLATION
     Dosage: 1 DF, PRN
     Route: 048
     Dates: start: 2013, end: 20131018
  3. CORDARONE [Suspect]
     Dosage: 200 MG, QD
     Route: 048
  4. ALDACTONE TABLETS [Concomitant]
     Dosage: UNK
     Route: 048
  5. SERESTA [Concomitant]
     Dosage: UNK
     Route: 048

REACTIONS (1)
  - Cerebral haemorrhage [Fatal]
